FAERS Safety Report 8517553 (Version 2)
Quarter: 2013Q1

REPORT INFORMATION
  Report Type: Spontaneous
  Country: US (occurrence: US)
  Receive Date: 20120417
  Receipt Date: 20130114
  Transmission Date: 20140127
  Serious: No
  Sender: FDA-Public Use
  Company Number: US-ASTRAZENECA-2011SE20337

PATIENT
  Age: 47 Year
  Sex: Female

DRUGS (4)
  1. NEXIUM [Suspect]
     Route: 048
  2. CRESTOR [Suspect]
     Route: 048
  3. ZANTAC [Concomitant]
  4. PREVACID [Concomitant]

REACTIONS (6)
  - Aphagia [Unknown]
  - Dyspepsia [Unknown]
  - Muscle spasms [Unknown]
  - Blood cholesterol increased [Unknown]
  - Abdominal pain upper [Unknown]
  - Drug dose omission [Unknown]
